FAERS Safety Report 8837746 (Version 2)
Quarter: 2012Q4

REPORT INFORMATION
  Report Type: Report from Study
  Country: RU (occurrence: RU)
  Receive Date: 20121012
  Receipt Date: 20121128
  Transmission Date: 20130627
  Serious: Yes (Hospitalization)
  Sender: FDA-Public Use
  Company Number: RU-BAYER-2012-103094

PATIENT
  Age: 11 Year
  Sex: Male
  Weight: 25 kg

DRUGS (2)
  1. ANTIHEMOPHILIC FACTOR (RECOMBINANT), SUCROSE FORMULATED FS [Suspect]
     Indication: PROPHYLAXIS
     Dosage: 500 IU twice a week
     Dates: start: 20081201
  2. ANTIHEMOPHILIC FACTOR (RECOMBINANT), SUCROSE FORMULATED FS [Suspect]
     Indication: HEMOPHILIA A
     Dosage: 500 iu, TIW

REACTIONS (1)
  - Contusion [Recovered/Resolved]
